FAERS Safety Report 7276742-X (Version None)
Quarter: 2011Q1

REPORT INFORMATION
  Report Type: 
  Country: None (occurrence: None)
  Receive Date: 20110204
  Receipt Date: 20110202
  Transmission Date: 20110831
  Serious: Yes (Other)
  Sender: FDA-Public Use
  Company Number: FR-PFIZER INC-2010165768

PATIENT
  Age: 67 Year
  Sex: Male
  Weight: 77 kg

DRUGS (3)
  1. ZAMUDOL [Concomitant]
     Indication: PAIN
     Dosage: 100 MG PER DAY
     Route: 048
     Dates: start: 20101124
  2. LYRICA [Suspect]
     Dosage: 50 MG, 2X/DAY
     Dates: start: 20101124, end: 20101207
  3. LYRICA [Suspect]
     Indication: SCIATICA
     Dosage: 25 MG, 2X/DAY
     Dates: start: 20101101

REACTIONS (4)
  - DIPLOPIA [None]
  - VISUAL ACUITY REDUCED [None]
  - HEADACHE [None]
  - MENINGITIS VIRAL [None]
